FAERS Safety Report 16716884 (Version 2)
Quarter: 2019Q3

REPORT INFORMATION
  Report Type: Spontaneous
  Country: CN (occurrence: CN)
  Receive Date: 20190819
  Receipt Date: 20190920
  Transmission Date: 20191005
  Serious: Yes (Hospitalization, Other)
  Sender: FDA-Public Use
  Company Number: CN-NOVOPROD-678658

PATIENT
  Age: 66 Year
  Sex: Male
  Weight: 85 kg

DRUGS (3)
  1. NOVOLIN [Suspect]
     Active Substance: INSULIN HUMAN
     Indication: TYPE 2 DIABETES MELLITUS
     Dosage: 40 IU, BID
     Route: 058
  2. METFORMIN [Concomitant]
     Active Substance: METFORMIN HYDROCHLORIDE
     Indication: TYPE 2 DIABETES MELLITUS
     Dosage: 2 TABLETS, THREE TIMES DAILY.
     Route: 048
     Dates: start: 2008
  3. ACARBOSE. [Concomitant]
     Active Substance: ACARBOSE
     Indication: TYPE 2 DIABETES MELLITUS
     Dosage: 2 TABLETS, THREE TIMES DAILY.
     Route: 048
     Dates: start: 2008

REACTIONS (6)
  - Pruritus generalised [Recovering/Resolving]
  - Blood glucose increased [Recovered/Resolved]
  - Product quality issue [Unknown]
  - Blood glucose abnormal [Unknown]
  - Coronary artery disease [Unknown]
  - Peripheral artery occlusion [Unknown]

NARRATIVE: CASE EVENT DATE: 201905
